FAERS Safety Report 20582823 (Version 1)
Quarter: 2022Q1

REPORT INFORMATION
  Report Type: Report from Study
  Country: JP (occurrence: JP)
  Receive Date: 20220311
  Receipt Date: 20220311
  Transmission Date: 20220423
  Serious: Yes (Other)
  Sender: FDA-Public Use
  Company Number: JP-SAMOHPHARM-2022000433

PATIENT

DRUGS (5)
  1. CYSTADANE [Suspect]
     Active Substance: BETAINE
     Indication: Cystathionine beta-synthase deficiency
     Dosage: 3.5 GRAM, BID
     Dates: start: 20150717
  2. CYSTADANE [Suspect]
     Active Substance: BETAINE
     Indication: Homocystinuria
     Dosage: 4.5 GRAM, BID
  3. CYSTADANE [Suspect]
     Active Substance: BETAINE
     Dosage: 2.75 GRAM, BID (5.5 G/DAY)
  4. CYSTADANE [Suspect]
     Active Substance: BETAINE
     Dosage: 8 GRAM, BID
     Dates: end: 20201022
  5. CYSTADANE [Suspect]
     Active Substance: BETAINE
     Dosage: 9 GRAM, BID
     Dates: start: 20201023

REACTIONS (2)
  - Thrombosis [Unknown]
  - Hypoaesthesia [Recovered/Resolved]

NARRATIVE: CASE EVENT DATE: 20200925
